FAERS Safety Report 11658641 (Version 3)
Quarter: 2015Q4

REPORT INFORMATION
  Report Type: Report from Study
  Country: CO (occurrence: CO)
  Receive Date: 20151026
  Receipt Date: 20151222
  Transmission Date: 20160304
  Serious: Yes (Other)
  Sender: FDA-Public Use
  Company Number: PHHY2015CO130941

PATIENT
  Age: 72 Year
  Sex: Female
  Weight: 53 kg

DRUGS (3)
  1. PREDNISOLONE. [Concomitant]
     Active Substance: PREDNISOLONE
     Indication: PRODUCT USED FOR UNKNOWN INDICATION
     Dosage: 20 MG, UNK
     Route: 065
     Dates: start: 201504
  2. REVOLADE [Suspect]
     Active Substance: ELTROMBOPAG
     Dosage: 100 MG, UNK
     Route: 048
     Dates: start: 201508
  3. REVOLADE [Suspect]
     Active Substance: ELTROMBOPAG
     Indication: IMMUNE THROMBOCYTOPENIC PURPURA
     Dosage: 25 MG, QD
     Route: 048
     Dates: start: 20150701

REACTIONS (7)
  - Alopecia [Unknown]
  - Arthralgia [Unknown]
  - Hepatic failure [Unknown]
  - Renal failure [Unknown]
  - Back pain [Unknown]
  - Pain of skin [Unknown]
  - Oesophagitis [Unknown]

NARRATIVE: CASE EVENT DATE: 20150701
